FAERS Safety Report 4450099-1 (Version None)
Quarter: 2004Q3

REPORT INFORMATION
  Report Type: 
  Country: None (occurrence: None)
  Receive Date: 20040915
  Receipt Date: 20020516
  Transmission Date: 20050211
  Serious: Yes (Death, Hospitalization, Other)
  Sender: FDA-Public Use
  Company Number: US-MERCK-0205USA01984

PATIENT
  Age: 64 Year
  Sex: Male
  Weight: 131 kg

DRUGS (9)
  1. [THERAPY UNSPECIFIED] [Concomitant]
     Route: 065
     Dates: start: 19960601
  2. VICODIN ES [Concomitant]
     Indication: PAIN
     Route: 065
  3. ZESTRIL [Concomitant]
     Indication: HYPERTENSION
     Route: 065
  4. VIOXX [Suspect]
     Indication: MONARTHRITIS
     Route: 048
     Dates: start: 20000801, end: 20010119
  5. VIOXX [Suspect]
     Route: 048
     Dates: start: 20010801
  6. VIOXX [Suspect]
     Indication: BACK PAIN
     Route: 048
     Dates: start: 20000801, end: 20010119
  7. VIOXX [Suspect]
     Route: 048
     Dates: start: 20010801
  8. RESTORIL [Concomitant]
     Indication: SLEEP DISORDER THERAPY
     Route: 065
  9. COUMADIN [Concomitant]
     Route: 048
     Dates: start: 20010219, end: 20010228

REACTIONS (78)
  - ABNORMAL FAECES [None]
  - AGONAL RHYTHM [None]
  - ANAEMIA [None]
  - ATHEROSCLEROSIS [None]
  - BENIGN PROSTATIC HYPERPLASIA [None]
  - BLISTER [None]
  - BLOOD PRESSURE SYSTOLIC INCREASED [None]
  - BUNDLE BRANCH BLOCK LEFT [None]
  - CARDIAC ARREST [None]
  - CARDIAC FAILURE CONGESTIVE [None]
  - CARDIAC MURMUR [None]
  - CARDIOMEGALY [None]
  - CARDIOMYOPATHY [None]
  - CELLULITIS [None]
  - CHEST INJURY [None]
  - CHRONIC OBSTRUCTIVE AIRWAYS DISEASE [None]
  - CHRONIC OBSTRUCTIVE AIRWAYS DISEASE EXACERBATED [None]
  - CLAVICLE FRACTURE [None]
  - COMA [None]
  - CONFUSION POSTOPERATIVE [None]
  - CONSTIPATION [None]
  - CONTUSION [None]
  - COR PULMONALE [None]
  - CYANOSIS [None]
  - DECREASED ACTIVITY [None]
  - DIAPHRAGMATIC PARALYSIS [None]
  - DILATATION ATRIAL [None]
  - DILATATION VENTRICULAR [None]
  - DIZZINESS [None]
  - DUODENAL ULCER HAEMORRHAGE [None]
  - DUODENITIS [None]
  - DYSPNOEA [None]
  - DYSPNOEA EXERTIONAL [None]
  - DYSURIA [None]
  - EMBOLISM [None]
  - ERYTHEMA [None]
  - FAECAL OCCULT BLOOD POSITIVE [None]
  - FAECES DISCOLOURED [None]
  - FUNGAL INFECTION [None]
  - GASTRIC ULCER [None]
  - GASTROOESOPHAGEAL REFLUX DISEASE [None]
  - HELICOBACTER PYLORI IDENTIFICATION TEST POSITIVE [None]
  - HYPOVENTILATION [None]
  - INJURY [None]
  - LOCALISED OSTEOARTHRITIS [None]
  - MELAENA [None]
  - MYOCARDIAL INFARCTION [None]
  - NEUROPATHY PERIPHERAL [None]
  - OBSTRUCTIVE AIRWAYS DISORDER [None]
  - OEDEMA PERIPHERAL [None]
  - OESOPHAGITIS [None]
  - ONYCHOMYCOSIS [None]
  - OXYGEN SATURATION DECREASED [None]
  - PAIN IN EXTREMITY [None]
  - PALLOR [None]
  - PERICARDIAL EFFUSION [None]
  - PITTING OEDEMA [None]
  - PLEURAL EFFUSION [None]
  - POLLAKIURIA [None]
  - PULMONARY EMBOLISM [None]
  - PULMONARY HYPERTENSION [None]
  - PUPIL FIXED [None]
  - RALES [None]
  - RASH [None]
  - RECTAL HAEMORRHAGE [None]
  - RENAL FAILURE [None]
  - RESTLESS LEGS SYNDROME [None]
  - RESTRICTIVE PULMONARY DISEASE [None]
  - RIB FRACTURE [None]
  - ROAD TRAFFIC ACCIDENT [None]
  - SKIN DISCOLOURATION [None]
  - THERAPY NON-RESPONDER [None]
  - TRICUSPID VALVE INCOMPETENCE [None]
  - VENTRICULAR DYSFUNCTION [None]
  - VENTRICULAR EXTRASYSTOLES [None]
  - VENTRICULAR FIBRILLATION [None]
  - VITREOUS FLOATERS [None]
  - WHEEZING [None]
